FAERS Safety Report 15521886 (Version 1)
Quarter: 2018Q4

REPORT INFORMATION
  Report Type: Spontaneous
  Country: US (occurrence: US)
  Receive Date: 20181018
  Receipt Date: 20181018
  Transmission Date: 20190205
  Serious: Yes (Hospitalization)
  Sender: FDA-Public Use
  Company Number: None

PATIENT
  Age: 59 Year
  Sex: Female
  Weight: 92.5 kg

DRUGS (1)
  1. RENFLEXIS [Suspect]
     Active Substance: INFLIXIMAB-ABDA
     Indication: INFLAMMATORY BOWEL DISEASE
     Route: 042
     Dates: start: 20181001, end: 20181001

REACTIONS (6)
  - Dyspnoea [None]
  - Infusion related reaction [None]
  - Muscle twitching [None]
  - Dizziness [None]
  - Chills [None]
  - Back pain [None]

NARRATIVE: CASE EVENT DATE: 20181001
